FAERS Safety Report 5872769-0 (Version None)
Quarter: 2008Q3

REPORT INFORMATION
  Report Type: 
  Country: None (occurrence: None)
  Receive Date: 20080905
  Receipt Date: 20080828
  Transmission Date: 20090109
  Serious: Yes (Other)
  Sender: FDA-Public Use
  Company Number: US-PFIZER INC-2008065736

PATIENT
  Sex: Female

DRUGS (6)
  1. DIDREX [Suspect]
     Indication: WEIGHT ABNORMAL
     Route: 048
     Dates: start: 19880101, end: 20080710
  2. LEVOTHYROXINE SODIUM [Concomitant]
  3. OXYCODONE HCL [Concomitant]
     Indication: BACK INJURY
  4. LEXAPRO [Concomitant]
  5. FERROUS SULFATE TAB [Concomitant]
  6. VITAMIN TAB [Concomitant]

REACTIONS (3)
  - DRUG SCREEN POSITIVE [None]
  - THYROIDECTOMY [None]
  - WEIGHT INCREASED [None]
